FAERS Safety Report 4473799-6 (Version None)
Quarter: 2004Q4

REPORT INFORMATION
  Report Type: 
  Country: None (occurrence: None)
  Receive Date: 20040917
  Receipt Date: 20040727
  Transmission Date: 20050328
  Serious: Yes (Other)
  Sender: FDA-Public Use
  Company Number: US-JNJFOC-20040501316

PATIENT
  Age: 38 Year
  Sex: Female
  Weight: 73.0291 kg

DRUGS (3)
  1. ORTHO TRI-CYCLEN LO [Suspect]
     Indication: CONTRACEPTION
     Dosage: 1 DOSE(S), 1 IN 1 DAY, ORAL
     Route: 048
  2. ESTROGEN-ONLY PILL (ESTROGEN NOS) [Concomitant]
  3. INSULIN [Concomitant]

REACTIONS (4)
  - DRUG EXPOSURE DURING PREGNANCY [None]
  - GESTATIONAL DIABETES [None]
  - MENSTRUATION IRREGULAR [None]
  - PREGNANCY ON ORAL CONTRACEPTIVE [None]
